FAERS Safety Report 25818901 (Version 1)
Quarter: 2025Q3

REPORT INFORMATION
  Report Type: Spontaneous
  Country: EU (occurrence: EU)
  Receive Date: 20250918
  Receipt Date: 20250918
  Transmission Date: 20251020
  Serious: Yes (Death, Life-Threatening, Hospitalization, Other)
  Sender: SANDOZ
  Company Number: None

PATIENT
  Age: 59 Year
  Sex: Male

DRUGS (13)
  1. ACYCLOVIR [Suspect]
     Active Substance: ACYCLOVIR
     Indication: Anti-infective therapy
     Route: 065
  2. CIPROFLOXACIN [Suspect]
     Active Substance: CIPROFLOXACIN
     Indication: Antibiotic therapy
     Route: 065
  3. CLARITHROMYCIN [Suspect]
     Active Substance: CLARITHROMYCIN
     Indication: Antibiotic therapy
     Route: 065
  4. FLUCONAZOLE [Suspect]
     Active Substance: FLUCONAZOLE
     Indication: Anti-infective therapy
     Route: 065
  5. KETOCONAZOLE [Suspect]
     Active Substance: KETOCONAZOLE
     Indication: Antibiotic therapy
     Dosage: 400 MG, QD
     Route: 048
  6. METRONIDAZOLE [Suspect]
     Active Substance: METRONIDAZOLE
     Indication: Product used for unknown indication
     Route: 065
  7. METHYLPREDNISOLONE [Suspect]
     Active Substance: METHYLPREDNISOLONE
     Indication: Chronic obstructive pulmonary disease
     Route: 065
  8. PENICILLIN G SODIUM [Suspect]
     Active Substance: PENICILLIN G SODIUM
     Indication: Anti-infective therapy
     Route: 065
  9. CEFUROXIME AXETIL [Concomitant]
     Active Substance: CEFUROXIME AXETIL
     Indication: Product used for unknown indication
     Route: 065
  10. SULFAMETHOXAZOLE\TRIMETHOPRIM [Concomitant]
     Active Substance: SULFAMETHOXAZOLE\TRIMETHOPRIM
     Indication: Product used for unknown indication
     Route: 065
  11. PHENYTOIN [Concomitant]
     Active Substance: PHENYTOIN
     Indication: Epilepsy
     Route: 065
  12. PRIMIDONE [Concomitant]
     Active Substance: PRIMIDONE
     Indication: Epilepsy
     Route: 065
  13. OMEPRAZOLE [Interacting]
     Active Substance: OMEPRAZOLE
     Indication: Duodenal ulcer
     Route: 065

REACTIONS (24)
  - Septic shock [Fatal]
  - Multiple organ dysfunction syndrome [Fatal]
  - Nosocomial infection [Fatal]
  - Pulmonary haemorrhage [Fatal]
  - Herpes virus infection [Fatal]
  - Pseudomonas infection [Fatal]
  - Peritonitis [Fatal]
  - Pneumothorax [Fatal]
  - Acute respiratory distress syndrome [Fatal]
  - Renal failure [Fatal]
  - Clostridium test positive [Fatal]
  - Cryptococcosis [Fatal]
  - Meningitis aseptic [Fatal]
  - Pleocytosis [Fatal]
  - Encephalitis fungal [Unknown]
  - Drug interaction [Unknown]
  - Coagulopathy [Unknown]
  - Leukopenia [Unknown]
  - C-reactive protein increased [Unknown]
  - Weight decreased [Not Recovered/Not Resolved]
  - Psychomotor retardation [Not Recovered/Not Resolved]
  - Condition aggravated [Not Recovered/Not Resolved]
  - Generalised tonic-clonic seizure [Unknown]
  - Loss of consciousness [Unknown]
